FAERS Safety Report 15822313 (Version 1)
Quarter: 2019Q1

REPORT INFORMATION
  Report Type: Spontaneous
  Country: US (occurrence: US)
  Receive Date: 20190114
  Receipt Date: 20190114
  Transmission Date: 20190417
  Serious: No
  Sender: FDA-Public Use
  Company Number: US-PFIZER INC-2019012533

PATIENT
  Age: 14 Year
  Sex: Female

DRUGS (1)
  1. GENOTROPIN [Suspect]
     Active Substance: SOMATROPIN
     Indication: SEPTO-OPTIC DYSPLASIA
     Dosage: 0.4 MG, DAILY

REACTIONS (17)
  - Lymphocyte count decreased [Unknown]
  - Basophil count increased [Unknown]
  - Blood sodium increased [Unknown]
  - Mean cell haemoglobin concentration decreased [Unknown]
  - Alanine aminotransferase increased [Unknown]
  - Blood magnesium increased [Unknown]
  - Blood glucose increased [Unknown]
  - Protein total increased [Unknown]
  - Globulins increased [Unknown]
  - Haematocrit increased [Unknown]
  - Blood chloride increased [Unknown]
  - Neutrophil count increased [Unknown]
  - Blood lactic acid increased [Unknown]
  - Cortisol increased [Unknown]
  - Product use in unapproved indication [Unknown]
  - Red blood cell count increased [Unknown]
  - Aspartate aminotransferase increased [Unknown]

NARRATIVE: CASE EVENT DATE: 20180323
